FAERS Safety Report 12527658 (Version 2)
Quarter: 2016Q3

REPORT INFORMATION
  Report Type: Spontaneous
  Country: US (occurrence: US)
  Receive Date: 20160705
  Receipt Date: 20160909
  Transmission Date: 20161109
  Serious: Yes (Hospitalization)
  Sender: FDA-Public Use
  Company Number: US-PFIZER INC-2016320484

PATIENT
  Age: 74 Year
  Sex: Female

DRUGS (2)
  1. TRAZODONE [Concomitant]
     Active Substance: TRAZODONE HYDROCHLORIDE
     Indication: SLEEP DISORDER
     Dosage: 50 MG, AT NIGHT
     Route: 048
  2. ZYVOX [Suspect]
     Active Substance: LINEZOLID
     Indication: INFECTION
     Dosage: 600 MG, 2X/DAY
     Dates: start: 20150605

REACTIONS (5)
  - Eating disorder [Recovered/Resolved]
  - Product use issue [Unknown]
  - Volume blood decreased [Recovering/Resolving]
  - Alopecia [Recovering/Resolving]
  - Weight decreased [Recovered/Resolved]
